FAERS Safety Report 8233846-2 (Version None)
Quarter: 2012Q1

REPORT INFORMATION
  Report Type: 
  Country: None (occurrence: None)
  Receive Date: 20120323
  Receipt Date: 20120323
  Transmission Date: 20120608
  Serious: Yes (Other)
  Sender: FDA-Public Use
  Company Number: None

PATIENT
  Age: 34 Year
  Sex: Female

DRUGS (1)
  1. BOTOX COSMETIC [Suspect]
     Indication: SKIN DISORDER
     Dosage: 29 UNITS X1 SUBCUTANEOUS
     Route: 058
     Dates: start: 20120316

REACTIONS (1)
  - INJECTION SITE SWELLING [None]
